FAERS Safety Report 23396564 (Version 1)
Quarter: 2024Q1

REPORT INFORMATION
  Report Type: Spontaneous
  Country: SE (occurrence: SE)
  Receive Date: 20240112
  Receipt Date: 20240112
  Transmission Date: 20240409
  Serious: Yes (Hospitalization)
  Sender: FDA-Public Use
  Company Number: None

PATIENT
  Age: 84 Year
  Weight: 48 kg

DRUGS (10)
  1. MIRTAZAPINE [Suspect]
     Active Substance: MIRTAZAPINE
     Indication: Depressed mood
     Route: 048
     Dates: start: 202310, end: 20231106
  2. CALCIUM CARBONATE\CHOLECALCIFEROL [Concomitant]
     Active Substance: CALCIUM CARBONATE\CHOLECALCIFEROL
     Dosage: 500 MG/800 IE, 500MG/20UG
     Route: 048
  3. FOLVIDON [Concomitant]
     Route: 048
  4. LEVOTHYROXINE SODIUM [Concomitant]
     Active Substance: LEVOTHYROXINE SODIUM
     Dosage: ENLIGT SCHEMA
     Route: 048
  5. LEVETIRACETAM [Concomitant]
     Active Substance: LEVETIRACETAM
     Route: 048
  6. HYDROKORTISON ORIFARM [Concomitant]
     Route: 048
  7. OXAZEPAM [Concomitant]
     Active Substance: OXAZEPAM
     Dosage: TIME INTERVAL: 1 AS NECESSARY
  8. Laktulos Meda [Concomitant]
  9. Alvedon Novum [Concomitant]
     Route: 048
  10. CYANOCOBALAMIN [Concomitant]
     Active Substance: CYANOCOBALAMIN
     Route: 048

REACTIONS (5)
  - Hallucination [Recovered/Resolved]
  - Disorientation [Recovered/Resolved]
  - Fall [Recovered/Resolved]
  - Diarrhoea [Recovered/Resolved]
  - Confusional state [Recovered/Resolved]

NARRATIVE: CASE EVENT DATE: 20231011
